FAERS Safety Report 5840449-3 (Version None)
Quarter: 2008Q3

REPORT INFORMATION
  Report Type: 
  Country: None (occurrence: None)
  Receive Date: 20080807
  Receipt Date: 20080807
  Transmission Date: 20090109
  Serious: Yes (Other)
  Sender: FDA-Public Use
  Company Number: None

PATIENT
  Age: 41 Year
  Sex: Female
  Weight: 73.9363 kg

DRUGS (1)
  1. ZOMIG [Suspect]
     Indication: MIGRAINE
     Dosage: ORAL;5.0 MILLIGRAM
     Route: 048
     Dates: start: 20080715, end: 20080715

REACTIONS (3)
  - DYSPNOEA [None]
  - FACIAL PAIN [None]
  - SENSATION OF HEAVINESS [None]
